FAERS Safety Report 21451419 (Version 3)
Quarter: 2022Q4

REPORT INFORMATION
  Report Type: Report from Study
  Country: US (occurrence: US)
  Receive Date: 20221013
  Receipt Date: 20221213
  Transmission Date: 20230113
  Serious: Yes (Hospitalization, Other)
  Sender: FDA-Public Use
  Company Number: US-HORIZON THERAPEUTICS-HZN-2022-006561

PATIENT

DRUGS (19)
  1. TEPEZZA [Suspect]
     Active Substance: TEPROTUMUMAB-TRBW
     Indication: Endocrine ophthalmopathy
     Dosage: 10 MG/KG, 1ST INFUSION
     Route: 042
     Dates: start: 20220706
  2. TEPEZZA [Suspect]
     Active Substance: TEPROTUMUMAB-TRBW
     Indication: Hyperthyroidism
     Dosage: 20 MG/KG, 2ND INFUSION
     Route: 042
     Dates: start: 20220727
  3. TEPEZZA [Suspect]
     Active Substance: TEPROTUMUMAB-TRBW
     Dosage: 20 MG/KG, 3RD INFUSION
     Route: 042
     Dates: start: 20220829
  4. TEPEZZA [Suspect]
     Active Substance: TEPROTUMUMAB-TRBW
     Dosage: 20 MG/KG, 4TH INFUSION
     Route: 042
     Dates: start: 20220919
  5. ALBUTEROL [Concomitant]
     Active Substance: ALBUTEROL
     Dosage: 2.5 MG
     Route: 065
     Dates: start: 20220624
  6. AMLODIPINE [Concomitant]
     Active Substance: AMLODIPINE BESYLATE
     Dosage: 10 MG
     Route: 065
     Dates: start: 20220624
  7. ASPIRIN [Concomitant]
     Active Substance: ASPIRIN
     Dosage: 81 MG
     Route: 065
     Dates: start: 20220624
  8. BRIMONIDINE TARTRATE [Concomitant]
     Active Substance: BRIMONIDINE TARTRATE
     Dosage: UNK
     Dates: start: 20220624
  9. SYMBICORT [Concomitant]
     Active Substance: BUDESONIDE\FORMOTEROL FUMARATE DIHYDRATE
     Dosage: 160-4.5MCG
     Route: 065
     Dates: start: 20220624
  10. CELECOXIB [Concomitant]
     Active Substance: CELECOXIB
     Dosage: 20 MG
     Route: 065
     Dates: start: 20220624
  11. DEXILANT [Concomitant]
     Active Substance: DEXLANSOPRAZOLE
     Dosage: 60 MG
     Route: 065
     Dates: start: 20220624
  12. HUMALOG [Concomitant]
     Active Substance: INSULIN LISPRO
     Dosage: UNK
     Dates: start: 20220624
  13. LINZESS [Concomitant]
     Active Substance: LINACLOTIDE
     Dosage: 145 UG
     Route: 065
     Dates: start: 20220624
  14. CRESTOR [Concomitant]
     Active Substance: ROSUVASTATIN CALCIUM
     Dosage: 10 MG
     Route: 065
     Dates: start: 20220624
  15. AMBIEN [Concomitant]
     Active Substance: ZOLPIDEM TARTRATE
     Dosage: 10 MG
     Route: 065
     Dates: start: 20220624
  16. DIETARY SUPPLEMENT\HERBALS [Concomitant]
     Active Substance: DIETARY SUPPLEMENT\HERBALS
     Dosage: UNK
     Dates: start: 20220624
  17. PREDNISONE [Concomitant]
     Active Substance: PREDNISONE
     Dosage: 20 MG, QD
     Route: 048
     Dates: start: 20220706
  18. EPIPEN [EPINEPHRINE] [Concomitant]
     Dosage: AS ORDERED
     Route: 065
     Dates: start: 20220706
  19. BROMHEXINE [Concomitant]
     Active Substance: BROMHEXINE
     Dosage: UNK
     Dates: start: 20220624

REACTIONS (11)
  - Diverticulitis [Unknown]
  - Diverticulum [Unknown]
  - Haematochezia [Unknown]
  - Abdominal pain [Unknown]
  - Condition aggravated [Unknown]
  - Vomiting [Unknown]
  - Diarrhoea [Unknown]
  - Eye pain [Unknown]
  - Ocular hyperaemia [Unknown]
  - Product dose omission issue [Unknown]
  - Inappropriate schedule of product administration [Unknown]

NARRATIVE: CASE EVENT DATE: 20220101
